FAERS Safety Report 5577337-6 (Version None)
Quarter: 2007Q4

REPORT INFORMATION
  Report Type: 
  Country: None (occurrence: None)
  Receive Date: 20071228
  Receipt Date: 20071219
  Transmission Date: 20080405
  Serious: Yes (Death, Hospitalization, Other)
  Sender: FDA-Public Use
  Company Number: US-PFIZER INC-2007091822

PATIENT
  Age: 57 Year
  Sex: Female
  Weight: 96 kg

DRUGS (2)
  1. ZYVOX [Suspect]
     Indication: CELLULITIS
     Route: 048
  2. ZYVOX [Suspect]
     Indication: ENTEROCOCCAL INFECTION

REACTIONS (9)
  - ACIDOSIS [None]
  - BLOOD ALBUMIN INCREASED [None]
  - BLOOD BICARBONATE DECREASED [None]
  - BLOOD LACTIC ACID INCREASED [None]
  - BLOOD PH DECREASED [None]
  - DYSPNOEA [None]
  - HYPOVENTILATION [None]
  - LACTIC ACIDOSIS [None]
  - RESPIRATORY FAILURE [None]
